FAERS Safety Report 8165972-0 (Version None)
Quarter: 2012Q1

REPORT INFORMATION
  Report Type: 
  Country: None (occurrence: None)
  Receive Date: 20120227
  Receipt Date: 20120104
  Transmission Date: 20120608
  Serious: No
  Sender: FDA-Public Use
  Company Number: US-MYLANLABS-2011S1026150

PATIENT
  Age: 22 Year
  Sex: Female
  Weight: 54.43 kg

DRUGS (5)
  1. CLARAVIS [Suspect]
     Indication: ACNE
     Dates: start: 20110101, end: 20110101
  2. CLARAVIS [Suspect]
     Dates: start: 20110101, end: 20110101
  3. ZYRTEC [Concomitant]
  4. CLARAVIS [Suspect]
     Dates: start: 20110101, end: 20110101
  5. AMNESTEEM [Suspect]
     Indication: ACNE
     Route: 048
     Dates: start: 20111122, end: 20111212

REACTIONS (2)
  - DEPRESSION [None]
  - STRESS [None]
